FAERS Safety Report 23903007 (Version 1)
Quarter: 2024Q2

REPORT INFORMATION
  Report Type: Spontaneous
  Country: US (occurrence: US)
  Receive Date: 20240527
  Receipt Date: 20240527
  Transmission Date: 20240716
  Serious: No
  Sender: FDA-Public Use
  Company Number: US-TEVA-VS-3198391

PATIENT
  Age: 60 Year
  Sex: Female

DRUGS (1)
  1. GRANIX [Suspect]
     Active Substance: TBO-FILGRASTIM
     Indication: Limb deformity
     Dosage: 300 MCG EVERY MONDAY, WEDNESDAY AND FRIDAY OF EACH WEEK
     Route: 065

REACTIONS (2)
  - Off label use [Unknown]
  - Product prescribing error [Unknown]
